FAERS Safety Report 8369991-0 (Version None)
Quarter: 2012Q2

REPORT INFORMATION
  Report Type: 
  Country: None (occurrence: None)
  Receive Date: 20120518
  Receipt Date: 20120511
  Transmission Date: 20120825
  Serious: Yes (Other)
  Sender: FDA-Public Use
  Company Number: US-ABBOTT-12P-163-0934637-00

PATIENT
  Sex: Female

DRUGS (1)
  1. DEPAKOTE [Suspect]
     Indication: DEMENTIA

REACTIONS (4)
  - DEHYDRATION [None]
  - PALLOR [None]
  - ASTHENIA [None]
  - OFF LABEL USE [None]
